FAERS Safety Report 25809684 (Version 2)
Quarter: 2025Q3

REPORT INFORMATION
  Report Type: Spontaneous
  Country: JP (occurrence: JP)
  Receive Date: 20250916
  Receipt Date: 20250919
  Transmission Date: 20251021
  Serious: Yes (Death, Other)
  Sender: TAKEDA
  Company Number: JP-TAKEDA-2025TJP009400

PATIENT
  Age: 24 Year
  Sex: Female

DRUGS (6)
  1. TRINTELLIX [Suspect]
     Active Substance: VORTIOXETINE HYDROBROMIDE
     Indication: Depression
     Dosage: 20 MILLIGRAM, QD
     Dates: start: 20250508, end: 20250601
  2. TRINTELLIX [Suspect]
     Active Substance: VORTIOXETINE HYDROBROMIDE
     Indication: Depression
     Dosage: 10 MILLIGRAM, QD
     Dates: start: 20250424, end: 20250430
  3. TRINTELLIX [Suspect]
     Active Substance: VORTIOXETINE HYDROBROMIDE
     Dosage: 15 MILLIGRAM, QD
     Dates: start: 20250501, end: 20250507
  4. QUETIAPINE [Concomitant]
     Active Substance: QUETIAPINE
  5. CLOTIAZEPAM [Concomitant]
     Active Substance: CLOTIAZEPAM
  6. DAYVIGO [Concomitant]
     Active Substance: LEMBOREXANT

REACTIONS (1)
  - Completed suicide [Fatal]

NARRATIVE: CASE EVENT DATE: 20250602
